FAERS Safety Report 6018078-0 (Version None)
Quarter: 2008Q4

REPORT INFORMATION
  Report Type: 
  Country: None (occurrence: None)
  Receive Date: 20081223
  Receipt Date: 20081212
  Transmission Date: 20090506
  Serious: Yes (Hospitalization, Other)
  Sender: FDA-Public Use
  Company Number: JP-PFIZER INC-2008100487

PATIENT

DRUGS (5)
  1. SALAZOPYRIN [Suspect]
     Dosage: 2 G, 3X/DAY
     Route: 048
     Dates: start: 20080410, end: 20080502
  2. MESALAMINE [Suspect]
     Dosage: 750 MG, 3X/DAY
     Route: 048
     Dates: start: 20080318, end: 20080506
  3. MESALAMINE [Suspect]
     Dosage: 1 G, 1X/DAY
     Route: 054
     Dates: start: 20080410, end: 20080506
  4. OTHER COLD COMBINATION PREPARATIONS [Concomitant]
  5. MIYARISAN BM [Concomitant]
     Dates: start: 20080318, end: 20080410

REACTIONS (1)
  - DRUG RASH WITH EOSINOPHILIA AND SYSTEMIC SYMPTOMS [None]
